FAERS Safety Report 23670798 (Version 3)
Quarter: 2024Q3

REPORT INFORMATION
  Report Type: Spontaneous
  Country: JP (occurrence: JP)
  Receive Date: 20240326
  Receipt Date: 20240703
  Transmission Date: 20241017
  Serious: Yes (Hospitalization, Other)
  Sender: NOVO NORDISK
  Company Number: JP-NOVOPROD-1192820

PATIENT
  Age: 17 Year
  Sex: Male
  Weight: 45.8 kg

DRUGS (2)
  1. NORDITROPIN [Suspect]
     Active Substance: SOMATROPIN
     Indication: Noonan syndrome
     Dosage: 0.85 MG, QD
     Route: 058
     Dates: start: 20180306
  2. NORDITROPIN [Suspect]
     Active Substance: SOMATROPIN
     Dosage: 2.4 MG, QD
     Route: 058
     Dates: end: 20240311

REACTIONS (1)
  - Malignant melanoma [Recovered/Resolved]

NARRATIVE: CASE EVENT DATE: 20240129
